FAERS Safety Report 18229259 (Version 1)
Quarter: 2020Q3

REPORT INFORMATION
  Report Type: Report from Study
  Country: US (occurrence: US)
  Receive Date: 20200903
  Receipt Date: 20200903
  Transmission Date: 20201103
  Serious: Yes (Other)
  Sender: FDA-Public Use
  Company Number: US-JNJFOC-20200841416

PATIENT
  Age: 53 Year
  Sex: Female

DRUGS (5)
  1. IBANDRONATE [Concomitant]
     Active Substance: IBANDRONATE SODIUM
     Route: 048
     Dates: start: 20200630
  2. METHOTREXATE. [Concomitant]
     Active Substance: METHOTREXATE
     Route: 048
     Dates: start: 20200618
  3. SIMPONI [Suspect]
     Active Substance: GOLIMUMAB
     Indication: RHEUMATOID ARTHRITIS
     Route: 058
     Dates: start: 20180509
  4. PREDNISONE. [Concomitant]
     Active Substance: PREDNISONE
     Route: 048
     Dates: start: 20200618
  5. HYDROXYCHLOR [Concomitant]
     Active Substance: HYDROXYCHLOROQUINE
     Route: 048
     Dates: start: 20200619

REACTIONS (2)
  - Rheumatoid arthritis [Unknown]
  - Contusion [Unknown]

NARRATIVE: CASE EVENT DATE: 20200824
